FAERS Safety Report 24198925 (Version 1)
Quarter: 2024Q3

REPORT INFORMATION
  Report Type: Report from Study
  Country: IN (occurrence: IN)
  Receive Date: 20240812
  Receipt Date: 20240812
  Transmission Date: 20241017
  Serious: Yes (Death)
  Sender: ROCHE
  Company Number: IN-ROCHE-3559160

PATIENT
  Age: 53 Year
  Sex: Male

DRUGS (2)
  1. TECENTRIQ [Suspect]
     Active Substance: ATEZOLIZUMAB
     Indication: Hepatocellular carcinoma
     Dosage: 3RD CYCLE AND 4TH CYCLE INTERVAL: 24TH DAY AND 29TH DAY
     Route: 042
     Dates: start: 20240313
  2. TECENTRIQ [Suspect]
     Active Substance: ATEZOLIZUMAB
     Dosage: NONE
     Route: 042

REACTIONS (3)
  - Asthenia [Unknown]
  - Off label use [Unknown]
  - Death [Fatal]
